FAERS Safety Report 21424998 (Version 2)
Quarter: 2022Q4

REPORT INFORMATION
  Report Type: Report from Study
  Country: DE (occurrence: DE)
  Receive Date: 20221008
  Receipt Date: 20221107
  Transmission Date: 20230113
  Serious: Yes (Life-Threatening)
  Sender: FDA-Public Use
  Company Number: DE-NOVARTISPH-NVSC2022DE224751

PATIENT
  Age: 27 Year
  Sex: Female
  Weight: 57 kg

DRUGS (8)
  1. OFATUMUMAB [Suspect]
     Active Substance: OFATUMUMAB
     Indication: Relapsing multiple sclerosis
     Dosage: 20 MG, QMO
     Route: 058
     Dates: start: 20220324, end: 20220906
  2. DESOGESTREL [Concomitant]
     Active Substance: DESOGESTREL
     Indication: Contraception
     Dosage: UNK
     Route: 065
     Dates: start: 20150601
  3. HERBALS [Concomitant]
     Active Substance: HERBALS
     Indication: Irritable bowel syndrome
     Dosage: UNK
     Route: 065
     Dates: start: 20170601
  4. VITAMIN D [Concomitant]
     Active Substance: VITAMIN D NOS
     Indication: Vitamin D deficiency
     Dosage: UNK
     Route: 065
     Dates: start: 20210507
  5. IBUPROFEN [Concomitant]
     Active Substance: IBUPROFEN
     Indication: Migraine with aura
     Dosage: UNK
     Route: 065
     Dates: start: 20090601
  6. IBUPROFEN [Concomitant]
     Active Substance: IBUPROFEN
     Indication: Headache
  7. ALLERGODIL AKUT [Concomitant]
     Indication: Seasonal allergy
     Dosage: UNK
     Route: 065
     Dates: start: 20220419
  8. DEXAMETHASONE SODIUM PHOSPHATE\GENTAMICIN SULFATE [Concomitant]
     Active Substance: DEXAMETHASONE SODIUM PHOSPHATE\GENTAMICIN SULFATE
     Indication: Chalazion
     Dosage: UNK
     Route: 065
     Dates: start: 20220722, end: 20220805

REACTIONS (1)
  - Medullary carcinoma of breast [Recovering/Resolving]

NARRATIVE: CASE EVENT DATE: 20220728
